FAERS Safety Report 4282136-1 (Version None)
Quarter: 2004Q1

REPORT INFORMATION
  Report Type: 
  Country: None (occurrence: None)
  Receive Date: 20040112
  Receipt Date: 20030821
  Transmission Date: 20041129
  Serious: Yes (Other)
  Sender: FDA-Public Use
  Company Number: US-JNJFOC-20030805196

PATIENT
  Age: 59 Year
  Sex: Male

DRUGS (4)
  1. REOPRO [Suspect]
     Dosage: INJECTION
  2. ACETYLSALICYLIC ACID SRT [Concomitant]
  3. PLAVIX [Concomitant]
  4. HEPARIN [Concomitant]

REACTIONS (1)
  - PLATELET COUNT DECREASED [None]
